FAERS Safety Report 4602686-5 (Version None)
Quarter: 2005Q1

REPORT INFORMATION
  Report Type: 
  Country: None (occurrence: None)
  Receive Date: 20050307
  Receipt Date: 20050225
  Transmission Date: 20050727
  Serious: Yes (Hospitalization)
  Sender: FDA-Public Use
  Company Number: MEDI-0002936

PATIENT
  Age: 7 Month
  Sex: Female
  Weight: 5.4432 kg

DRUGS (1)
  1. SYNAGIS [Suspect]
     Indication: ANTIVIRAL PROPHYLAXIS
     Dosage: , 1 IN 30 D
     Dates: start: 20041229, end: 20041229

REACTIONS (3)
  - DEHYDRATION [None]
  - FEEDING DISORDER OF INFANCY OR EARLY CHILDHOOD [None]
  - VOMITING [None]
